FAERS Safety Report 23668648 (Version 1)
Quarter: 2024Q1

REPORT INFORMATION
  Report Type: Spontaneous
  Country: US (occurrence: US)
  Receive Date: 20240325
  Receipt Date: 20240325
  Transmission Date: 20240410
  Serious: Yes (Other)
  Sender: FDA-Public Use
  Company Number: US-DRL-USA-LIT/USA/24/0004663

PATIENT
  Age: 82 Year
  Sex: Male

DRUGS (2)
  1. GEMCITABINE [Suspect]
     Active Substance: GEMCITABINE
     Indication: Bladder transitional cell carcinoma
  2. CARBOPLATIN [Suspect]
     Active Substance: CARBOPLATIN
     Indication: Bladder transitional cell carcinoma

REACTIONS (2)
  - Disease progression [Unknown]
  - Treatment failure [Unknown]
